FAERS Safety Report 5615028-3 (Version None)
Quarter: 2008Q1

REPORT INFORMATION
  Report Type: 
  Country: None (occurrence: None)
  Receive Date: 20080206
  Receipt Date: 20080125
  Transmission Date: 20080703
  Serious: Yes (Hospitalization)
  Sender: FDA-Public Use
  Company Number: US-KINGPHARMUSA00001-K200800048

PATIENT

DRUGS (9)
  1. AVINZA [Suspect]
     Indication: PAIN
     Dosage: 30 MG, QD
     Route: 048
     Dates: start: 20070911, end: 20070925
  2. AVINZA [Suspect]
     Indication: RADICULITIS CERVICAL
     Dosage: 60 MG, QD
     Dates: start: 20070926, end: 20071010
  3. AVINZA [Suspect]
     Dosage: 90 MG, QD
     Dates: start: 20071011, end: 20071025
  4. AVINZA [Suspect]
     Dosage: 60 MG, QD
     Dates: start: 20071026, end: 20071101
  5. AVINZA [Suspect]
     Dosage: 30 MG, QD
     Dates: start: 20071102, end: 20071115
  6. AVINZA [Suspect]
     Dosage: 60 MG, QD
     Dates: start: 20071116
  7. LYRICA [Concomitant]
     Dosage: 75 MG, TID
     Dates: start: 20071130
  8. LYRICA [Concomitant]
     Dosage: 100 MG, TID
  9. EPIDURAL [Concomitant]
     Route: 008
     Dates: start: 20071022, end: 20071022

REACTIONS (10)
  - CHEST PAIN [None]
  - CONFUSIONAL STATE [None]
  - DRUG INEFFECTIVE [None]
  - HYPERTENSION [None]
  - LOSS OF CONSCIOUSNESS [None]
  - MENTAL STATUS CHANGES [None]
  - METABOLIC ENCEPHALOPATHY [None]
  - OVERDOSE [None]
  - PYREXIA [None]
  - STUPOR [None]
